FAERS Safety Report 10452715 (Version 2)
Quarter: 2014Q3

REPORT INFORMATION
  Report Type: Report from Study
  Country: US (occurrence: US)
  Receive Date: 20140915
  Receipt Date: 20140915
  Transmission Date: 20150326
  Serious: Yes (Hospitalization)
  Sender: FDA-Public Use
  Company Number: US-BAYER-2014-019609

PATIENT
  Age: 71 Year
  Sex: Male

DRUGS (2)
  1. NEXAVAR [Suspect]
     Active Substance: SORAFENIB
     Indication: HEPATIC CANCER STAGE IV
     Dosage: 400 MG, BID
     Route: 048
     Dates: start: 20140123, end: 20140222
  2. NEXAVAR [Suspect]
     Active Substance: SORAFENIB
     Indication: METASTASES TO LUNG
     Dosage: 200 MG AND 400 MG ALTERNATELY IN MORNING
     Route: 048
     Dates: start: 20140224

REACTIONS (11)
  - Alopecia [Recovering/Resolving]
  - Systolic hypertension [Recovering/Resolving]
  - Skin exfoliation [Recovering/Resolving]
  - Dizziness postural [Recovering/Resolving]
  - Nausea [None]
  - Vomiting [None]
  - Diarrhoea [Recovered/Resolved]
  - Abdominal pain upper [None]
  - Intention tremor [Recovering/Resolving]
  - Confusional state [Recovering/Resolving]
  - Fatigue [Recovering/Resolving]

NARRATIVE: CASE EVENT DATE: 20140222
